FAERS Safety Report 26134313 (Version 1)
Quarter: 2025Q4

REPORT INFORMATION
  Report Type: Spontaneous
  Country: US (occurrence: US)
  Receive Date: 20251209
  Receipt Date: 20251209
  Transmission Date: 20260117
  Serious: Yes (Hospitalization)
  Sender: AMGEN
  Company Number: US-AMGEN-USASP2025240508

PATIENT
  Age: 29 Year
  Sex: Female

DRUGS (1)
  1. PREDNISONE [Suspect]
     Active Substance: PREDNISONE
     Indication: Vestibular neuronitis
     Dosage: UNK (TAPER)
     Route: 065

REACTIONS (3)
  - Cerebellar infarction [Unknown]
  - Hypertension [Unknown]
  - Off label use [Unknown]
